FAERS Safety Report 19924670 (Version 8)
Quarter: 2024Q1

REPORT INFORMATION
  Report Type: Spontaneous
  Country: BE (occurrence: BE)
  Receive Date: 20211006
  Receipt Date: 20240228
  Transmission Date: 20240410
  Serious: Yes (Hospitalization, Other)
  Sender: FDA-Public Use
  Company Number: BE-BOEHRINGERINGELHEIM-2021-BI-131003

PATIENT
  Age: 81 Year
  Sex: Male

DRUGS (103)
  1. TAMSULOSIN [Suspect]
     Active Substance: TAMSULOSIN
     Indication: Product used for unknown indication
     Route: 048
  2. TAMSULOSIN [Suspect]
     Active Substance: TAMSULOSIN
     Route: 048
  3. PRADAXA [Suspect]
     Active Substance: DABIGATRAN ETEXILATE MESYLATE
     Indication: Atrial fibrillation
     Route: 048
     Dates: end: 20240122
  4. PRADAXA [Suspect]
     Active Substance: DABIGATRAN ETEXILATE MESYLATE
     Route: 065
     Dates: end: 20211006
  5. PRADAXA [Suspect]
     Active Substance: DABIGATRAN ETEXILATE MESYLATE
     Route: 065
     Dates: start: 2020
  6. PRADAXA [Suspect]
     Active Substance: DABIGATRAN ETEXILATE MESYLATE
     Dosage: (THERAPY NOW RESTARTED 29 JAN 2024 (AFTER WITHDRAWAL 22 JAN 2024)
     Route: 048
     Dates: start: 20240129
  7. JARDIANCE [Suspect]
     Active Substance: EMPAGLIFLOZIN
     Indication: Product used for unknown indication
     Dosage: 25 MG, EVERY OTHER DAY (HALF A TABLET OF 25 MG DAILY)
     Route: 048
  8. JARDIANCE [Suspect]
     Active Substance: EMPAGLIFLOZIN
     Dosage: 25 MG, EVERY OTHER DAY (HALF A TABLET OF 25 MG DAILY)
     Route: 048
  9. JARDIANCE [Suspect]
     Active Substance: EMPAGLIFLOZIN
  10. JARDIANCE [Suspect]
     Active Substance: EMPAGLIFLOZIN
     Dosage: 25 MG, QOD
  11. JARDIANCE [Suspect]
     Active Substance: EMPAGLIFLOZIN
     Dosage: 25 MG, EVERY OTHER DAY (HALF A TABLET OF 25 MG DAILY)
     Route: 048
  12. JARDIANCE [Suspect]
     Active Substance: EMPAGLIFLOZIN
     Dosage: 25 MG, EVERY OTHER DAY (HALF A TABLET OF 25 MG DAILY)
     Route: 048
  13. JARDIANCE [Suspect]
     Active Substance: EMPAGLIFLOZIN
     Dosage: 25 MG, EVERY OTHER DAY (HALF A TABLET OF 25 MG DAILY)
     Route: 048
  14. JARDIANCE [Suspect]
     Active Substance: EMPAGLIFLOZIN
     Dosage: 25 MG, EVERY OTHER DAY (HALF A TABLET OF 25 MG DAILY)
     Route: 048
  15. JARDIANCE [Suspect]
     Active Substance: EMPAGLIFLOZIN
     Dosage: 25 MG, QOD
  16. JARDIANCE [Suspect]
     Active Substance: EMPAGLIFLOZIN
     Dosage: 25 MG, QOD
  17. FINASTERIDE [Suspect]
     Active Substance: FINASTERIDE
     Indication: Product used for unknown indication
     Route: 048
  18. FINASTERIDE [Suspect]
     Active Substance: FINASTERIDE
     Route: 048
  19. FINASTERIDE [Suspect]
     Active Substance: FINASTERIDE
     Dosage: 5 MG, QD
  20. FINASTERIDE [Suspect]
     Active Substance: FINASTERIDE
     Dosage: 5 MG, QD
  21. FINASTERIDE [Suspect]
     Active Substance: FINASTERIDE
     Route: 048
  22. FINASTERIDE [Suspect]
     Active Substance: FINASTERIDE
     Route: 048
  23. FINASTERIDE [Suspect]
     Active Substance: FINASTERIDE
     Route: 048
  24. FINASTERIDE [Suspect]
     Active Substance: FINASTERIDE
     Route: 048
  25. FINASTERIDE [Suspect]
     Active Substance: FINASTERIDE
     Dosage: 5 MG, QD
  26. FINASTERIDE [Suspect]
     Active Substance: FINASTERIDE
     Dosage: 5 MG, QD
  27. SACUBITRIL\VALSARTAN [Suspect]
     Active Substance: SACUBITRIL\VALSARTAN
     Indication: Product used for unknown indication
     Dosage: UNK UNK, TWICE DAILY (49/51 MG)
     Route: 048
  28. SACUBITRIL\VALSARTAN [Suspect]
     Active Substance: SACUBITRIL\VALSARTAN
     Dosage: UNK UNK, TWICE DAILY (49/51 MG)
     Route: 048
  29. SACUBITRIL\VALSARTAN [Suspect]
     Active Substance: SACUBITRIL\VALSARTAN
     Dosage: UNK UNK, TWICE DAILY (49/51 MG)
  30. SACUBITRIL\VALSARTAN [Suspect]
     Active Substance: SACUBITRIL\VALSARTAN
     Dosage: UNK UNK, TWICE DAILY (49/51 MG)
     Route: 048
  31. SACUBITRIL\VALSARTAN [Suspect]
     Active Substance: SACUBITRIL\VALSARTAN
     Dosage: UNK UNK, TWICE DAILY (49/51 MG)
     Route: 048
  32. SACUBITRIL\VALSARTAN [Suspect]
     Active Substance: SACUBITRIL\VALSARTAN
     Dosage: UNK UNK, TWICE DAILY (49/51 MG)
     Route: 048
  33. SACUBITRIL\VALSARTAN [Suspect]
     Active Substance: SACUBITRIL\VALSARTAN
     Dosage: UNK UNK, TWICE DAILY (49/51 MG)
     Route: 048
  34. SACUBITRIL\VALSARTAN [Suspect]
     Active Substance: SACUBITRIL\VALSARTAN
     Dosage: UNK UNK, TWICE DAILY (49/51 MG)
  35. NITROGLYCERIN [Suspect]
     Active Substance: NITROGLYCERIN
     Indication: Product used for unknown indication
     Route: 062
  36. NITROGLYCERIN [Suspect]
     Active Substance: NITROGLYCERIN
     Route: 062
  37. NITROGLYCERIN [Suspect]
     Active Substance: NITROGLYCERIN
     Dosage: 5 MG, QD
  38. NITROGLYCERIN [Suspect]
     Active Substance: NITROGLYCERIN
     Dosage: 5 MG, QD
  39. NITROGLYCERIN [Suspect]
     Active Substance: NITROGLYCERIN
     Route: 062
  40. NITROGLYCERIN [Suspect]
     Active Substance: NITROGLYCERIN
     Route: 062
  41. NITROGLYCERIN [Suspect]
     Active Substance: NITROGLYCERIN
     Route: 062
  42. NITROGLYCERIN [Suspect]
     Active Substance: NITROGLYCERIN
     Route: 062
  43. NITROGLYCERIN [Suspect]
     Active Substance: NITROGLYCERIN
     Dosage: 5 MG, QD
  44. NITROGLYCERIN [Suspect]
     Active Substance: NITROGLYCERIN
     Dosage: 5 MG, QD
  45. BIPERIDEN [Suspect]
     Active Substance: BIPERIDEN
     Indication: Product used for unknown indication
     Route: 048
  46. BIPERIDEN [Suspect]
     Active Substance: BIPERIDEN
     Route: 048
  47. BIPERIDEN [Suspect]
     Active Substance: BIPERIDEN
     Dosage: 2 MG, QD
  48. BIPERIDEN [Suspect]
     Active Substance: BIPERIDEN
     Dosage: 2 MG, QD
  49. BIPERIDEN [Suspect]
     Active Substance: BIPERIDEN
     Route: 048
  50. BIPERIDEN [Suspect]
     Active Substance: BIPERIDEN
     Route: 048
  51. BIPERIDEN [Suspect]
     Active Substance: BIPERIDEN
     Route: 048
  52. BIPERIDEN [Suspect]
     Active Substance: BIPERIDEN
     Route: 048
  53. BIPERIDEN [Suspect]
     Active Substance: BIPERIDEN
     Dosage: 2 MG, QD
  54. BIPERIDEN [Suspect]
     Active Substance: BIPERIDEN
     Dosage: 2 MG, QD
  55. MEMANTINE HYDROCHLORIDE [Suspect]
     Active Substance: MEMANTINE HYDROCHLORIDE
     Indication: Product used for unknown indication
     Route: 065
  56. MEMANTINE HYDROCHLORIDE [Suspect]
     Active Substance: MEMANTINE HYDROCHLORIDE
     Dosage: UNK UNK, ONCE DAILY
     Route: 065
  57. MEMANTINE HYDROCHLORIDE [Suspect]
     Active Substance: MEMANTINE HYDROCHLORIDE
     Route: 065
  58. MEMANTINE HYDROCHLORIDE [Suspect]
     Active Substance: MEMANTINE HYDROCHLORIDE
     Route: 065
  59. MEMANTINE HYDROCHLORIDE [Suspect]
     Active Substance: MEMANTINE HYDROCHLORIDE
     Dosage: UNK UNK, ONCE DAILY
     Route: 065
  60. SPIRONOLACTONE [Suspect]
     Active Substance: SPIRONOLACTONE
     Indication: Product used for unknown indication
     Route: 048
  61. BUMETANIDE [Suspect]
     Active Substance: BUMETANIDE
     Indication: Product used for unknown indication
     Route: 048
  62. BUMETANIDE [Suspect]
     Active Substance: BUMETANIDE
     Route: 048
  63. BUMETANIDE [Suspect]
     Active Substance: BUMETANIDE
     Dosage: 1 MG, QD
  64. BUMETANIDE [Suspect]
     Active Substance: BUMETANIDE
     Dosage: 1 MG, QD
  65. BUMETANIDE [Suspect]
     Active Substance: BUMETANIDE
     Route: 048
  66. BUMETANIDE [Suspect]
     Active Substance: BUMETANIDE
     Route: 048
  67. BUMETANIDE [Suspect]
     Active Substance: BUMETANIDE
     Route: 048
  68. BUMETANIDE [Suspect]
     Active Substance: BUMETANIDE
     Route: 048
  69. BUMETANIDE [Suspect]
     Active Substance: BUMETANIDE
     Dosage: 1 MG, QD
  70. BUMETANIDE [Suspect]
     Active Substance: BUMETANIDE
     Dosage: 1 MG, QD
  71. ROSUVASTATIN [Suspect]
     Active Substance: ROSUVASTATIN
     Indication: Product used for unknown indication
     Route: 048
  72. CARVEDILOL [Suspect]
     Active Substance: CARVEDILOL
     Indication: Product used for unknown indication
     Route: 048
  73. CARVEDILOL [Suspect]
     Active Substance: CARVEDILOL
     Route: 048
  74. CARVEDILOL [Suspect]
     Active Substance: CARVEDILOL
     Dosage: 25 MG, BID
  75. CARVEDILOL [Suspect]
     Active Substance: CARVEDILOL
     Dosage: 25 UNK
  76. CARVEDILOL [Suspect]
     Active Substance: CARVEDILOL
     Route: 048
  77. CARVEDILOL [Suspect]
     Active Substance: CARVEDILOL
     Route: 048
  78. CARVEDILOL [Suspect]
     Active Substance: CARVEDILOL
     Route: 048
  79. CARVEDILOL [Suspect]
     Active Substance: CARVEDILOL
     Route: 048
  80. CARVEDILOL [Suspect]
     Active Substance: CARVEDILOL
     Dosage: 25 MG, BID
  81. CARVEDILOL [Suspect]
     Active Substance: CARVEDILOL
     Dosage: 25 UNK
  82. PANTOPRAZOLE [Suspect]
     Active Substance: PANTOPRAZOLE
     Indication: Product used for unknown indication
     Route: 048
  83. PANTOPRAZOLE [Suspect]
     Active Substance: PANTOPRAZOLE
     Route: 048
  84. PANTOPRAZOLE [Suspect]
     Active Substance: PANTOPRAZOLE
     Dosage: 40 MG, QD
  85. PANTOPRAZOLE [Suspect]
     Active Substance: PANTOPRAZOLE
     Route: 048
  86. PANTOPRAZOLE [Suspect]
     Active Substance: PANTOPRAZOLE
     Route: 048
  87. PANTOPRAZOLE [Suspect]
     Active Substance: PANTOPRAZOLE
     Route: 048
  88. PANTOPRAZOLE [Suspect]
     Active Substance: PANTOPRAZOLE
     Route: 048
  89. PANTOPRAZOLE [Suspect]
     Active Substance: PANTOPRAZOLE
     Dosage: 40 MG, QD
  90. MINERALS\VITAMINS [Suspect]
     Active Substance: MINERALS\VITAMINS
     Indication: Vitamin supplementation
     Route: 048
  91. MINERALS\VITAMINS [Suspect]
     Active Substance: MINERALS\VITAMINS
     Route: 048
  92. MINERALS\VITAMINS [Suspect]
     Active Substance: MINERALS\VITAMINS
     Dosage: UNK, QD
  93. MINERALS\VITAMINS [Suspect]
     Active Substance: MINERALS\VITAMINS
     Dosage: UNK, QD
     Route: 065
  94. MINERALS\VITAMINS [Suspect]
     Active Substance: MINERALS\VITAMINS
     Route: 048
  95. MINERALS\VITAMINS [Suspect]
     Active Substance: MINERALS\VITAMINS
     Route: 048
  96. MINERALS\VITAMINS [Suspect]
     Active Substance: MINERALS\VITAMINS
     Route: 048
  97. MINERALS\VITAMINS [Suspect]
     Active Substance: MINERALS\VITAMINS
     Route: 048
  98. MINERALS\VITAMINS [Suspect]
     Active Substance: MINERALS\VITAMINS
     Dosage: UNK, QD
     Route: 065
  99. MINERALS\VITAMINS [Suspect]
     Active Substance: MINERALS\VITAMINS
     Dosage: UNK, QD
  100. ROSUVASTATIN [Suspect]
     Active Substance: ROSUVASTATIN
     Indication: Product used for unknown indication
  101. SPIRONOLACTONE [Suspect]
     Active Substance: SPIRONOLACTONE
     Indication: Product used for unknown indication
  102. CLOPIDOGREL [Concomitant]
     Active Substance: CLOPIDOGREL BISULFATE
     Indication: Product used for unknown indication
     Route: 065
     Dates: end: 20211006
  103. CLOPIDOGREL [Concomitant]
     Active Substance: CLOPIDOGREL BISULFATE
     Indication: Product used for unknown indication
     Dosage: UNK
     Route: 065
     Dates: end: 20211006

REACTIONS (5)
  - Pallor [Not Recovered/Not Resolved]
  - Fatigue [Not Recovered/Not Resolved]
  - Gastrointestinal haemorrhage [Not Recovered/Not Resolved]
  - Gastric haemorrhage [Recovering/Resolving]
  - Faeces discoloured [Recovering/Resolving]

NARRATIVE: CASE EVENT DATE: 20211006
